FAERS Safety Report 12415778 (Version 1)
Quarter: 2016Q2

REPORT INFORMATION
  Report Type: Report from Study
  Country: CN (occurrence: CN)
  Receive Date: 20160530
  Receipt Date: 20160530
  Transmission Date: 20160815
  Serious: Yes (Other)
  Sender: FDA-Public Use
  Company Number: CN-ACCORD-040956

PATIENT
  Age: 44 Year
  Sex: Female

DRUGS (2)
  1. PACLITAXEL/PACLITAXEL LIPOSOME [Suspect]
     Active Substance: PACLITAXEL
     Indication: INTRAPERITONEAL HYPERTHERMIC CHEMOTHERAPY
     Route: 033
  2. LOBAPLATIN [Suspect]
     Active Substance: LOBAPLATIN
     Indication: INTRAPERITONEAL HYPERTHERMIC CHEMOTHERAPY
     Route: 033

REACTIONS (1)
  - Pseudomembranous colitis [Unknown]
